FAERS Safety Report 7759429-6 (Version None)
Quarter: 2011Q3

REPORT INFORMATION
  Report Type: 
  Country: None (occurrence: None)
  Receive Date: 20110919
  Receipt Date: 20110912
  Transmission Date: 20111222
  Serious: Yes (Hospitalization)
  Sender: FDA-Public Use
  Company Number: JP-ROCHE-789252

PATIENT
  Sex: Female
  Weight: 58.6 kg

DRUGS (18)
  1. BEVACIZUMAB [Suspect]
     Indication: BREAST CANCER
     Route: 042
     Dates: start: 20080418, end: 20110427
  2. PACLITAXEL [Suspect]
     Indication: BREAST CANCER
     Route: 042
     Dates: start: 20080418, end: 20110427
  3. LASIX [Concomitant]
     Route: 048
     Dates: start: 20100317
  4. NORVASC [Concomitant]
     Route: 048
     Dates: start: 20091203, end: 20100217
  5. FAMOTIDINE [Concomitant]
     Route: 048
     Dates: start: 20110427
  6. OLMESARTAN MEDOXOMIL [Concomitant]
     Route: 048
     Dates: start: 20110303
  7. KETOPROFEN [Concomitant]
     Dosage: DOSE FORM: TAPE , DOSING: PROPER QUANTITY PER DAY.
     Route: 062
     Dates: start: 20100428
  8. NORVASC [Concomitant]
     Route: 048
     Dates: start: 20100304
  9. MUCOSTA [Concomitant]
     Route: 048
     Dates: start: 20100428
  10. ULCERLMIN [Concomitant]
     Route: 048
     Dates: start: 20110420
  11. FEMARA [Concomitant]
     Route: 048
     Dates: start: 20110520
  12. OLMESARTAN MEDOXOMIL [Concomitant]
     Route: 048
     Dates: start: 20091125, end: 20100217
  13. OLMESARTAN MEDOXOMIL [Concomitant]
     Route: 048
     Dates: start: 20100819, end: 20110302
  14. GOSHAJINKIGAN [Concomitant]
     Dosage: FORM: OINTMENT + CREAM
     Route: 048
     Dates: start: 20080815
  15. BIOFERMIN [Concomitant]
     Route: 048
     Dates: start: 20110531
  16. MS ONSHIPPU [Concomitant]
     Dosage: FORM: TAPE,PROPER QUANTITY/DAY
     Route: 062
     Dates: start: 20080425
  17. NORVASC [Concomitant]
     Route: 048
     Dates: start: 20080613, end: 20091125
  18. ETODOLAC [Concomitant]
     Route: 048
     Dates: start: 20100428

REACTIONS (1)
  - AORTIC DISSECTION [None]
